FAERS Safety Report 9135321 (Version 1)
Quarter: 2013Q1

REPORT INFORMATION
  Report Type: Spontaneous
  Country: GB (occurrence: GB)
  Receive Date: 20130304
  Receipt Date: 20130304
  Transmission Date: 20140127
  Serious: Yes (Death, Other)
  Sender: FDA-Public Use
  Company Number: GB-ELI_LILLY_AND_COMPANY-GB201303000277

PATIENT
  Age: 63 Year
  Sex: Female

DRUGS (4)
  1. BYETTA [Suspect]
     Dosage: 10 UG, BID
     Route: 058
  2. GLICLAZIDE [Concomitant]
     Dosage: 80 MG, BID
     Route: 048
  3. IRBESARTAN [Concomitant]
     Dosage: 300 MG, QD
     Route: 048
  4. METFORMIN [Concomitant]
     Dosage: 1 G, TID
     Route: 048

REACTIONS (2)
  - Pancreatic carcinoma [Fatal]
  - Metastases to lung [Not Recovered/Not Resolved]
